FAERS Safety Report 10173724 (Version 2)
Quarter: 2014Q2

REPORT INFORMATION
  Report Type: Spontaneous
  Country: US (occurrence: US)
  Receive Date: 20140515
  Receipt Date: 20140515
  Transmission Date: 20141212
  Serious: No
  Sender: FDA-Public Use
  Company Number: US-TEVA-466273USA

PATIENT
  Sex: Female

DRUGS (1)
  1. PROGESTERONE [Suspect]

REACTIONS (1)
  - Throat irritation [Recovered/Resolved]
